FAERS Safety Report 4714275-2 (Version None)
Quarter: 2005Q3

REPORT INFORMATION
  Report Type: 
  Country: None (occurrence: None)
  Receive Date: 20050714
  Receipt Date: 20050627
  Transmission Date: 20060218
  Serious: Yes (Other)
  Sender: FDA-Public Use
  Company Number: JP-JNJFOC-20050606228

PATIENT
  Age: 14 Year
  Sex: Male

DRUGS (5)
  1. ITRIZOLE [Suspect]
     Indication: ONYCHOMYCOSIS
     Dosage: CONFIRMED THAT ITRACONAZOLE WAS NOT GIVEN, PATIENT RECEIVED GENERIC ITRACONAZOLE(ICONAZON)
     Route: 049
     Dates: start: 20050616, end: 20050617
  2. CLARITHROMYCIN [Concomitant]
     Indication: BRONCHITIS
     Route: 049
  3. CLENBUTEROL HYDROCHLORIDE [Concomitant]
     Route: 065
     Dates: start: 20050616, end: 20050618
  4. THEOPHYLLINE [Concomitant]
     Route: 049
     Dates: start: 20050616, end: 20050618
  5. MONTELEUKAST [Concomitant]
     Route: 049

REACTIONS (1)
  - ARRHYTHMIA [None]
